FAERS Safety Report 6794741-9 (Version None)
Quarter: 2010Q2

REPORT INFORMATION
  Report Type: 
  Country: None (occurrence: None)
  Receive Date: 20100625
  Receipt Date: 20100617
  Transmission Date: 20101027
  Serious: Yes (Hospitalization, Other)
  Sender: FDA-Public Use
  Company Number: GB-ABBOTT-10P-167-0648175-00

PATIENT
  Sex: Female

DRUGS (2)
  1. HUMIRA [Suspect]
     Indication: RHEUMATOID ARTHRITIS
     Dates: start: 20071101
  2. COAMILOFRUSE [Concomitant]
     Indication: DRUG USE FOR UNKNOWN INDICATION
     Dosage: 5 MG + 40 MG IN THE MORNING

REACTIONS (5)
  - CELLULITIS [None]
  - CONTUSION [None]
  - DYSPNOEA EXERTIONAL [None]
  - OEDEMA PERIPHERAL [None]
  - WHEEZING [None]
